FAERS Safety Report 7308910-2 (Version None)
Quarter: 2011Q1

REPORT INFORMATION
  Report Type: 
  Country: None (occurrence: None)
  Receive Date: 20110210
  Receipt Date: 20110120
  Transmission Date: 20110831
  Serious: Yes (Death)
  Sender: FDA-Public Use
  Company Number: AE11-006-7

PATIENT
  Age: 54 Year
  Sex: Male

DRUGS (6)
  1. CALCIUM ANTAGONIST [Suspect]
  2. ACETAMINOPHEN [Suspect]
  3. LORCET-HD [Suspect]
  4. WARFARIN [Suspect]
  5. DIURETIC (NOS) [Suspect]
  6. CORTICOSTEROIDS [Suspect]

REACTIONS (1)
  - DEATH [None]
